FAERS Safety Report 9447555 (Version 2)
Quarter: 2013Q4

REPORT INFORMATION
  Report Type: Spontaneous
  Country: FR (occurrence: None)
  Receive Date: 20130805
  Receipt Date: 20131223
  Transmission Date: 20140711
  Serious: Yes (Hospitalization)
  Sender: FDA-Public Use
  Company Number: DSM-2013-00691

PATIENT
  Age: 60 Year
  Sex: Male

DRUGS (1)
  1. OLMETEC (OLMESARTAN MEDOXOMIL) (TABLET) (OLMESARTAN MEDOXOMIL) [Suspect]
     Indication: HYPERTENSION
     Route: 048
     Dates: start: 2011, end: 201306

REACTIONS (7)
  - Abdominal pain [None]
  - Diarrhoea [None]
  - Nausea [None]
  - Weight decreased [None]
  - Autoimmune disorder [None]
  - Gastrointestinal disorder [None]
  - Iatrogenic injury [None]
